FAERS Safety Report 19391352 (Version 1)
Quarter: 2021Q2

REPORT INFORMATION
  Report Type: Spontaneous
  Country: LK (occurrence: LK)
  Receive Date: 20210609
  Receipt Date: 20210609
  Transmission Date: 20210717
  Serious: Yes (Hospitalization, Other)
  Sender: FDA-Public Use
  Company Number: LK-VISTAPHARM, INC.-VER202106-001410

PATIENT
  Age: 37 Year
  Sex: Male

DRUGS (1)
  1. HYDROCODONE AND ACETAMINOPHEN [Suspect]
     Active Substance: ACETAMINOPHEN\HYDROCODONE
     Indication: PRODUCT USED FOR UNKNOWN INDICATION
     Dosage: 667 MG/KG (80 TABLETS)
     Route: 048

REACTIONS (4)
  - Toxicity to various agents [Recovered/Resolved]
  - Overdose [Unknown]
  - Liver injury [Recovered/Resolved]
  - Metabolic acidosis [Recovered/Resolved]
